FAERS Safety Report 7381037-X (Version None)
Quarter: 2011Q1

REPORT INFORMATION
  Report Type: 
  Country: None (occurrence: None)
  Receive Date: 20110329
  Receipt Date: 20100402
  Transmission Date: 20110831
  Serious: No
  Sender: FDA-Public Use
  Company Number: US-AMGEN-KDL403460

PATIENT
  Sex: Male

DRUGS (9)
  1. SENSIPAR [Suspect]
     Indication: HYPERPARATHYROIDISM SECONDARY
     Dosage: 30 MG, QD
     Route: 048
     Dates: start: 20100315
  2. MELOXICAM [Concomitant]
     Dosage: UNK UNK, UNK
  3. ATENOLOL [Concomitant]
     Dosage: UNK UNK, UNK
  4. EPOGEN [Concomitant]
     Indication: DIALYSIS
     Dosage: UNK UNK, UNK
  5. GLUCOSAMINE [Concomitant]
     Dosage: UNK UNK, UNK
  6. OMEPRAZOLE [Concomitant]
     Dosage: UNK UNK, UNK
  7. RENAGEL [Concomitant]
     Dosage: UNK UNK, UNK
  8. PARICALCITOL [Concomitant]
     Dosage: UNK UNK, UNK
  9. VENOFER [Concomitant]
     Dosage: UNK UNK, UNK

REACTIONS (2)
  - PRURITUS [None]
  - RASH [None]
